FAERS Safety Report 5424373-6 (Version None)
Quarter: 2007Q3

REPORT INFORMATION
  Report Type: 
  Country: None (occurrence: None)
  Receive Date: 20070727
  Receipt Date: 20070518
  Transmission Date: 20080115
  Serious: No
  Sender: FDA-Public Use
  Company Number: 263780

PATIENT
  Age: 70 Year
  Sex: Female

DRUGS (4)
  1. LEVEMIR [Suspect]
     Indication: INSULIN-REQUIRING TYPE II DIABETES MELLITUS
     Dosage: QD, SUBCUTANEOUS
     Route: 058
  2. NOVOLOG [Suspect]
     Indication: INSULIN-REQUIRING TYPE II DIABETES MELLITUS
     Dosage: 30 IU, QD, SUBCUTANEOUS
     Route: 058
  3. VERAPAMIL [Concomitant]
  4. ALTACE [Concomitant]

REACTIONS (1)
  - ACCIDENTAL NEEDLE STICK [None]
